APPROVED DRUG PRODUCT: LIBRIUM
Active Ingredient: CHLORDIAZEPOXIDE HYDROCHLORIDE
Strength: 100MG/AMP
Dosage Form/Route: INJECTABLE;INJECTION
Application: N012301 | Product #001
Applicant: BAUSCH HEALTH US LLC
Approved: Approved Prior to Jan 1, 1982 | RLD: No | RS: No | Type: DISCN